FAERS Safety Report 7215157-7 (Version None)
Quarter: 2011Q1

REPORT INFORMATION
  Report Type: 
  Country: None (occurrence: None)
  Receive Date: 20110107
  Receipt Date: 20101005
  Transmission Date: 20110831
  Serious: No
  Sender: FDA-Public Use
  Company Number: A0882361A

PATIENT
  Age: 46 Year
  Sex: Female

DRUGS (3)
  1. HYDROCHLOROTHIAZIDE [Concomitant]
  2. LOVAZA [Suspect]
     Dosage: 4G PER DAY
     Route: 048
  3. LISINOPRIL [Concomitant]

REACTIONS (1)
  - COUGH [None]
